FAERS Safety Report 10431073 (Version 3)
Quarter: 2015Q3

REPORT INFORMATION
  Report Type: Spontaneous
  Country: US (occurrence: US)
  Receive Date: 20140904
  Receipt Date: 20150804
  Transmission Date: 20151125
  Serious: No
  Sender: FDA-Public Use
  Company Number: US-BAYER-2014-131398

PATIENT
  Age: 25 Year
  Sex: Female
  Weight: 62.59 kg

DRUGS (1)
  1. SKYLA [Suspect]
     Active Substance: LEVONORGESTREL
     Indication: CONTRACEPTION
     Dosage: 14 MCG/24HR, CONT
     Route: 015
     Dates: start: 20140212, end: 20140826

REACTIONS (4)
  - Breast tenderness [None]
  - Drug ineffective [None]
  - Pregnancy with contraceptive device [None]
  - Menstruation delayed [None]

NARRATIVE: CASE EVENT DATE: 2014
